FAERS Safety Report 4594781-4 (Version None)
Quarter: 2005Q1

REPORT INFORMATION
  Report Type: 
  Country: None (occurrence: None)
  Receive Date: 20050301
  Receipt Date: 20050221
  Transmission Date: 20050727
  Serious: Yes (Other)
  Sender: FDA-Public Use
  Company Number: PHBS2005JP02737

PATIENT
  Age: 73 Year
  Sex: Male

DRUGS (4)
  1. WARFARIN SODIUM [Suspect]
     Route: 065
  2. BAKTAR [Suspect]
     Route: 065
  3. NEORAL [Concomitant]
     Dosage: 50 MG/D
     Route: 048
     Dates: start: 20050120, end: 20050218
  4. SANDIMMUNE [Suspect]
     Indication: NEPHROTIC SYNDROME
     Dosage: 50 MG/D
     Route: 042
     Dates: start: 20050219, end: 20050220

REACTIONS (6)
  - CHEYNE-STOKES RESPIRATION [None]
  - CYANOSIS [None]
  - HYPOTENSION [None]
  - LOSS OF CONSCIOUSNESS [None]
  - SHOCK [None]
  - TRANSAMINASES INCREASED [None]
